FAERS Safety Report 24114741 (Version 1)
Quarter: 2024Q3

REPORT INFORMATION
  Report Type: Spontaneous
  Country: US (occurrence: US)
  Receive Date: 20240721
  Receipt Date: 20240721
  Transmission Date: 20241017
  Serious: Yes (Hospitalization, Other)
  Sender: Steriscience PTE
  Company Number: IN-Wipro-3957495-379119

PATIENT
  Age: 38 Year
  Sex: Female

DRUGS (3)
  1. BUPIVACAINE [Suspect]
     Active Substance: BUPIVACAINE
     Indication: Spinal anaesthesia
     Dosage: SINGLE-SHOT
     Route: 065
  2. FENTANYL [Suspect]
     Active Substance: FENTANYL\FENTANYL CITRATE
     Indication: Spinal anaesthesia
     Dosage: SINGLE-SHOT
     Route: 065
  3. MORPHINE [Suspect]
     Active Substance: MORPHINE
     Indication: Spinal anaesthesia
     Dosage: SINGLE-SHOT
     Route: 065

REACTIONS (2)
  - Anterior spinal artery syndrome [None]
  - Maternal exposure during delivery [Unknown]
